FAERS Safety Report 4623103-5 (Version None)
Quarter: 2005Q1

REPORT INFORMATION
  Report Type: 
  Country: None (occurrence: None)
  Receive Date: 20050328
  Receipt Date: 20050328
  Transmission Date: 20050727
  Serious: Yes (Hospitalization)
  Sender: FDA-Public Use
  Company Number: None

PATIENT
  Age: 63 Year
  Sex: Female
  Weight: 54 kg

DRUGS (2)
  1. AVASTIN [Suspect]
     Indication: COLON CANCER METASTATIC
     Dosage: 270MG  EVERY 2 WEEKS  INTRAVENOUS
     Route: 042
     Dates: start: 20050323, end: 20050323
  2. OXALIPLATIN [Suspect]
     Indication: COLON CANCER METASTATIC
     Dosage: 150MG  EVERY 2 WEEKS  INTRAVENOUS
     Route: 042
     Dates: start: 20050323, end: 20050323

REACTIONS (5)
  - DYSARTHRIA [None]
  - FACIAL PALSY [None]
  - HYPOAESTHESIA [None]
  - LARYNGOSPASM [None]
  - VISUAL FIELD DEFECT [None]
